FAERS Safety Report 13489248 (Version 1)
Quarter: 2017Q2

REPORT INFORMATION
  Report Type: Spontaneous
  Country: SA (occurrence: SA)
  Receive Date: 20170426
  Receipt Date: 20170426
  Transmission Date: 20170830
  Serious: Yes (Other)
  Sender: FDA-Public Use
  Company Number: SA-ELI_LILLY_AND_COMPANY-SA201704008921

PATIENT
  Age: 65 Year
  Sex: Female

DRUGS (2)
  1. INSULIN [Concomitant]
     Active Substance: INSULIN NOS
  2. FORTEO [Suspect]
     Active Substance: TERIPARATIDE
     Indication: OSTEOPOROSIS
     Dosage: 20 UG, QD
     Route: 058
     Dates: start: 20160516, end: 20170116

REACTIONS (5)
  - Diabetes mellitus [Unknown]
  - Epilepsy [Unknown]
  - Renal impairment [Unknown]
  - Blood cholesterol increased [Unknown]
  - Hypertension [Unknown]
